FAERS Safety Report 5467497-X (Version None)
Quarter: 2007Q3

REPORT INFORMATION
  Report Type: 
  Country: None (occurrence: None)
  Receive Date: 20070925
  Receipt Date: 20070924
  Transmission Date: 20080115
  Serious: Yes (Hospitalization)
  Sender: FDA-Public Use
  Company Number: US-ROXANE LABORATORIES, INC-2007-DE-05704GD

PATIENT
  Age: 80 Year
  Sex: Female

DRUGS (12)
  1. MORPHINE [Suspect]
     Indication: CANCER PAIN
     Route: 048
  2. MORPHINE [Suspect]
     Route: 048
  3. IBUPROFEN [Suspect]
     Indication: PELVIC PAIN
  4. DURAGESIC-100 [Suspect]
     Indication: PELVIC PAIN
     Dosage: 25 MCG (Q 48 HOURS)
     Route: 062
  5. DURAGESIC-100 [Suspect]
     Dosage: 75 MCG Q2D
     Route: 062
  6. DURAGESIC-100 [Suspect]
     Dosage: 150 MCG Q2D
     Route: 062
  7. DURAGESIC-100 [Suspect]
     Dosage: 200 MCG Q2D
     Route: 062
  8. GABAPENTIN [Suspect]
     Indication: PELVIC PAIN
     Route: 048
  9. OXYCONTIN [Suspect]
     Indication: PELVIC PAIN
     Route: 048
  10. OXYCODONE HCL [Suspect]
     Indication: PELVIC PAIN
     Route: 048
  11. OXYCODONE HCL [Suspect]
     Dosage: 40 MG - 60 MG
     Route: 048
  12. TAXOTERE [Concomitant]
     Indication: BLADDER TRANSITIONAL CELL CARCINOMA RECURRENT
     Dates: start: 20060201, end: 20060301

REACTIONS (7)
  - ABDOMINAL PAIN UPPER [None]
  - BALANCE DISORDER [None]
  - CHEST PAIN [None]
  - DRUG INEFFECTIVE [None]
  - HALLUCINATION, VISUAL [None]
  - RESTLESSNESS [None]
  - VOMITING [None]
